FAERS Safety Report 12911732 (Version 35)
Quarter: 2024Q4

REPORT INFORMATION
  Report Type: Spontaneous
  Country: BR (occurrence: BR)
  Receive Date: 20161104
  Receipt Date: 20241016
  Transmission Date: 20250114
  Serious: Yes (Hospitalization, Other)
  Sender: GLAXOSMITHKLINE
  Company Number: BR-GLAXOSMITHKLINE-BR2016GSK144075

PATIENT

DRUGS (10)
  1. BENLYSTA [Suspect]
     Active Substance: BELIMUMAB
     Indication: Systemic lupus erythematosus
     Dosage: 120 MG
     Route: 042
     Dates: start: 20160916
  2. BENLYSTA [Suspect]
     Active Substance: BELIMUMAB
     Dosage: 820 MG
     Route: 042
     Dates: start: 20170410
  3. BENLYSTA [Suspect]
     Active Substance: BELIMUMAB
     Dosage: 930 MG
     Route: 042
     Dates: start: 20170508
  4. BENLYSTA [Suspect]
     Active Substance: BELIMUMAB
     Dosage: UNK, Q4W, 6 OF 120 MG
     Route: 042
  5. PREDNISONE [Suspect]
     Active Substance: PREDNISONE
     Indication: Product used for unknown indication
     Dosage: UNK
  6. HYDROXYCHLOROQUINE SULFATE [Suspect]
     Active Substance: HYDROXYCHLOROQUINE SULFATE
     Indication: Product used for unknown indication
     Dosage: UNK
  7. COVID-19 VACCINE [Concomitant]
     Indication: Product used for unknown indication
     Dosage: UNK,BOOSTER
  8. INFLUENZA VIRUS VACCINE [Concomitant]
     Active Substance: INFLUENZA VIRUS VACCINE
     Indication: Product used for unknown indication
     Dosage: UNK
  9. AZATHIOPRINE [Concomitant]
     Active Substance: AZATHIOPRINE
     Indication: Product used for unknown indication
     Dosage: UNK
  10. KETOPROFEN LYSINE [Concomitant]
     Active Substance: KETOPROFEN LYSINE
     Indication: Product used for unknown indication
     Dosage: UNK

REACTIONS (20)
  - Pyelonephritis [Unknown]
  - Tendon rupture [Recovered/Resolved]
  - Metabolic surgery [Unknown]
  - Nausea [Recovered/Resolved]
  - Aggression [Unknown]
  - Malaise [Unknown]
  - Arthropathy [Unknown]
  - Weight loss poor [Unknown]
  - Sinusitis [Recovered/Resolved]
  - Asthenia [Unknown]
  - Somnolence [Unknown]
  - Tachycardia [Unknown]
  - Weight decreased [Unknown]
  - Memory impairment [Unknown]
  - Influenza [Unknown]
  - Overdose [Unknown]
  - Inappropriate schedule of product administration [Unknown]
  - Product dose omission issue [Unknown]
  - Circumstance or information capable of leading to medication error [Unknown]
  - Product prescribing error [Unknown]

NARRATIVE: CASE EVENT DATE: 20180614
